FAERS Safety Report 9616768 (Version 1)
Quarter: 2013Q4

REPORT INFORMATION
  Report Type: Spontaneous
  Country: US (occurrence: US)
  Receive Date: 20131011
  Receipt Date: 20131011
  Transmission Date: 20140711
  Serious: Yes (Other)
  Sender: FDA-Public Use
  Company Number: US-UCBSA-099466

PATIENT
  Sex: Male

DRUGS (1)
  1. VIMPAT [Suspect]
     Dosage: UNSPECIFIED DOSE
     Dates: start: 20130922

REACTIONS (6)
  - Grand mal convulsion [Unknown]
  - Heart rate decreased [Unknown]
  - Oxygen consumption decreased [Unknown]
  - Hypersomnia [Unknown]
  - Vomiting projectile [Unknown]
  - Asthenia [Unknown]
